FAERS Safety Report 9397834 (Version 1)
Quarter: 2013Q3

REPORT INFORMATION
  Report Type: Spontaneous
  Country: AU (occurrence: AU)
  Receive Date: 20130712
  Receipt Date: 20130712
  Transmission Date: 20140515
  Serious: Yes (Other)
  Sender: FDA-Public Use
  Company Number: AU-BAYER-2013-083352

PATIENT
  Age: 47 Year
  Sex: Female

DRUGS (7)
  1. NEXAVAR 200 MG TABLET [Suspect]
     Indication: OSTEOSARCOMA
     Dosage: UNK
     Dates: start: 201209
  2. OXYCONTIN [Concomitant]
     Dosage: UNK
  3. OXYNORM [Concomitant]
     Dosage: UNK
  4. AMITRIPTYLINE [Concomitant]
     Dosage: UNK
  5. CLEXANE [Concomitant]
     Dosage: UNK
  6. PARACETAMOL [Concomitant]
     Dosage: UNK
  7. PREGABALIN [Concomitant]
     Dosage: UNK

REACTIONS (1)
  - Osteosarcoma metastatic [None]
